FAERS Safety Report 8052331 (Version 4)
Quarter: 2013Q2

REPORT INFORMATION
  Report Type: Spontaneous
  Country: GB (occurrence: GB)
  Receive Date: 20110725
  Receipt Date: 20130508
  Transmission Date: 20140414
  Serious: Yes (Death, Hospitalization)
  Sender: FDA-Public Use
  Company Number: PHHY2011GB65495

PATIENT
  Age: 46 Year
  Sex: Female

DRUGS (2)
  1. CICLOSPORIN [Suspect]
     Indication: HEART TRANSPLANT
  2. MYCOPHENOLATE MOFETIL [Suspect]
     Indication: HEART TRANSPLANT

REACTIONS (12)
  - Acute hepatic failure [Fatal]
  - Alanine aminotransferase increased [Fatal]
  - Hepatic necrosis [Fatal]
  - Haemodynamic instability [Fatal]
  - Hypoglycaemia [Fatal]
  - International normalised ratio increased [Fatal]
  - Dyspnoea [Fatal]
  - Adenovirus infection [Fatal]
  - Encephalopathy [Fatal]
  - Hepatitis [Unknown]
  - Pyrexia [Unknown]
  - Renal impairment [Unknown]
